FAERS Safety Report 20869149 (Version 1)
Quarter: 2022Q2

REPORT INFORMATION
  Report Type: Spontaneous
  Country: DE (occurrence: DE)
  Receive Date: 20220524
  Receipt Date: 20220524
  Transmission Date: 20220721
  Serious: Yes (Other)
  Sender: FDA-Public Use
  Company Number: DE-OPKO PHARMACEUTICALS, LLC.-2022OPK00029

PATIENT
  Sex: Female
  Weight: 105 kg

DRUGS (16)
  1. RAYALDEE [Suspect]
     Active Substance: CALCIFEDIOL
     Indication: Vitamin D deficiency
     Dosage: 30 MICROGRAM
     Route: 048
     Dates: start: 20220223, end: 20220412
  2. RAYALDEE [Suspect]
     Active Substance: CALCIFEDIOL
     Indication: Hyperparathyroidism secondary
  3. ASPIRIN [Concomitant]
     Active Substance: ASPIRIN
     Dosage: 100 IU INTERNATIONAL UNIT(S), QD
     Route: 048
  4. METOPROLOL SUCCINATE [Concomitant]
     Active Substance: METOPROLOL SUCCINATE
     Dosage: 47.5 MILLIGRAM, QD
     Route: 048
  5. AMLODIPINE BESYLATE [Concomitant]
     Active Substance: AMLODIPINE BESYLATE
     Dosage: 7.5 MILLIGRAM, QD
     Route: 048
  6. CANDESARTAN CILEXETIL [Concomitant]
     Active Substance: CANDESARTAN CILEXETIL
     Dosage: 10 MILLIGRAM, QD
     Route: 048
  7. TORSEMIDE [Concomitant]
     Active Substance: TORSEMIDE
     Dosage: 10 MILLIGRAM, QD
     Route: 048
  8. ALLOPURINOL [Concomitant]
     Active Substance: ALLOPURINOL
     Dosage: 100 MILLIGRAM, QD
     Route: 048
  9. INSULIN HUMAN [Concomitant]
     Active Substance: INSULIN HUMAN
     Dosage: 30 UNK, BID
  10. LANTUS [Concomitant]
     Active Substance: INSULIN GLARGINE
     Dosage: 16 IU INTERNATIONAL UNIT(S), QD
     Route: 058
  11. METHYLPREDNISOLONE ACEPONATE [Concomitant]
     Active Substance: METHYLPREDNISOLONE ACEPONATE
     Dosage: 0.1 PERCENT, PRN
     Route: 003
  12. SODIUM BICARBONATE [Concomitant]
     Active Substance: SODIUM BICARBONATE
  13. DAPAGLIFLOZIN [Concomitant]
     Active Substance: DAPAGLIFLOZIN
     Dosage: 10 MILLIGRAM, QD
     Route: 048
     Dates: end: 20220412
  14. JANUVIA [Concomitant]
     Active Substance: SITAGLIPTIN PHOSPHATE
     Dosage: 25 MILLIGRAM, QD
     Route: 048
     Dates: start: 20220412
  15. CIPROFLOXACIN [Concomitant]
     Active Substance: CIPROFLOXACIN
     Dosage: UNK
  16. CHOLECALCIFEROL [Concomitant]
     Active Substance: CHOLECALCIFEROL
     Dosage: 20000 IU INTERNATIONAL UNIT(S)
     Dates: start: 2022

REACTIONS (1)
  - Renal impairment [Unknown]
